FAERS Safety Report 22599777 (Version 1)
Quarter: 2023Q2

REPORT INFORMATION
  Report Type: Spontaneous
  Country: SE (occurrence: SE)
  Receive Date: 20230614
  Receipt Date: 20230614
  Transmission Date: 20230721
  Serious: Yes (Other)
  Sender: FDA-Public Use
  Company Number: None

PATIENT
  Age: 87 Year
  Sex: Male

DRUGS (14)
  1. ROSUVASTATIN [Suspect]
     Active Substance: ROSUVASTATIN
     Indication: Product used for unknown indication
     Dosage: UNK
     Route: 065
  2. ATORVASTATIN [Suspect]
     Active Substance: ATORVASTATIN
     Indication: Product used for unknown indication
     Dosage: 10 MILLIGRAM, QD
     Route: 065
  3. EZETIMIBE [Suspect]
     Active Substance: EZETIMIBE
     Indication: Product used for unknown indication
     Dosage: 10 MILLIGRAM, QD
     Route: 065
  4. IMDUR [Concomitant]
     Active Substance: ISOSORBIDE MONONITRATE
     Dosage: 30 MILLIGRAM, QD
     Route: 065
     Dates: start: 20191002
  5. UREA [Concomitant]
     Active Substance: UREA
     Dosage: 1 APPLICATION 1 TIME DAILY
     Route: 065
     Dates: start: 20230203
  6. Furix [Concomitant]
     Dosage: 40 MILLIGRAM, QD
     Route: 065
     Dates: start: 20181109
  7. DESLORATADINE [Concomitant]
     Active Substance: DESLORATADINE
     Dosage: 1-2 TABLETS 1-2 TIMES DAILY
     Route: 065
     Dates: start: 20190613
  8. CLOBETASOL [Concomitant]
     Active Substance: CLOBETASOL
     Dosage: 1 APPLICATION IN THE EVEN FOR 2 WK, THEN 2 EV/WK
     Route: 065
     Dates: start: 20200108
  9. Propyderm [Concomitant]
     Dosage: 1 APPLICATION 2 TIMES DAILY
     Route: 065
     Dates: start: 20180904
  10. OXYCODONE HYDROCHLORIDE [Concomitant]
     Active Substance: OXYCODONE HYDROCHLORIDE
     Dosage: 5 MILLIGRAM, PRN (AS NEEDED)
     Route: 065
  11. EMOVAT [Concomitant]
     Dosage: 1 APPLICATION IN THE EVEN FOR 2 WK, THEN 2 EV/WKER 2 KV?LLAR PER VECKA
     Route: 065
  12. MOVICOL [Concomitant]
     Active Substance: POLYETHYLENE GLYCOL 3350\POTASSIUM CHLORIDE\SODIUM BICARBONATE\SODIUM CHLORIDE
     Dosage: 1 DOSAGE FORM, PRN (1-3 TIMES DAILY)
     Route: 065
     Dates: start: 20220622
  13. WARFARIN SODIUM [Concomitant]
     Active Substance: WARFARIN SODIUM
     Dosage: 2.5 MILLIGRAM, QD
     Route: 065
     Dates: start: 20180214
  14. CANDESARTAN [Concomitant]
     Active Substance: CANDESARTAN
     Dosage: 4 MILLIGRAM, QD
     Route: 065
     Dates: start: 20201030

REACTIONS (2)
  - Muscle atrophy [Recovering/Resolving]
  - Myopathy [Recovering/Resolving]
